FAERS Safety Report 4891952-4 (Version None)
Quarter: 2006Q1

REPORT INFORMATION
  Report Type: 
  Country: None (occurrence: None)
  Receive Date: 20060126
  Receipt Date: 20060116
  Transmission Date: 20060701
  Serious: Yes (Other)
  Sender: FDA-Public Use
  Company Number: PHEH2006US01028

PATIENT
  Sex: Female

DRUGS (3)
  1. ZOMETA [Suspect]
     Indication: BREAST CANCER METASTATIC
     Dosage: UNK, QMO
     Route: 042
  2. PACLITAXEL [Concomitant]
     Dosage: UNK, QW
     Route: 042
  3. COUMADIN [Concomitant]
     Indication: THROMBOSIS
     Dosage: UNK, QD
     Route: 048

REACTIONS (1)
  - LIVER DISORDER [None]
